FAERS Safety Report 4508420-1 (Version None)
Quarter: 2004Q4

REPORT INFORMATION
  Report Type: 
  Country: None (occurrence: None)
  Receive Date: 20041123
  Receipt Date: 20040205
  Transmission Date: 20050328
  Serious: No
  Sender: FDA-Public Use
  Company Number: US-GLAXOSMITHKLINE-A0496767A

PATIENT
  Age: 25 Year
  Sex: Female

DRUGS (1)
  1. WELLBUTRIN [Suspect]
     Indication: DEPRESSION
     Dosage: 150MG SEE DOSAGE TEXT
     Route: 048
     Dates: start: 20040101

REACTIONS (1)
  - DIZZINESS [None]
